FAERS Safety Report 20962346 (Version 1)
Quarter: 2022Q2

REPORT INFORMATION
  Report Type: Spontaneous
  Country: US (occurrence: None)
  Receive Date: 20220615
  Receipt Date: 20220615
  Transmission Date: 20220721
  Serious: Yes (Hospitalization)
  Sender: FDA-Public Use
  Company Number: None

PATIENT
  Sex: Male
  Weight: 63.69 kg

DRUGS (2)
  1. CARBOPLATIN [Suspect]
     Active Substance: CARBOPLATIN
  2. ETOPOSIDE [Concomitant]
     Active Substance: ETOPOSIDE

REACTIONS (5)
  - Abdominal pain [None]
  - Diarrhoea [None]
  - Body temperature decreased [None]
  - Decreased appetite [None]
  - Neutrophil count abnormal [None]
